FAERS Safety Report 14713996 (Version 1)
Quarter: 2018Q2

REPORT INFORMATION
  Report Type: Spontaneous
  Country: FR (occurrence: FR)
  Receive Date: 20180404
  Receipt Date: 20180404
  Transmission Date: 20180711
  Serious: Yes (Hospitalization)
  Sender: FDA-Public Use
  Company Number: FR-AUROBINDO-AUR-APL-2018-017108

PATIENT
  Age: 87 Year
  Sex: Female

DRUGS (3)
  1. CEFTRIAXONE 1G/10 ML [Suspect]
     Active Substance: CEFTRIAXONE
     Indication: ANTIBIOTIC PROPHYLAXIS
     Route: 042
     Dates: start: 20180305, end: 20180313
  2. IPRATROPIUM [Suspect]
     Active Substance: IPRATROPIUM
     Indication: WHEEZING
     Dosage: (3)
     Route: 055
     Dates: start: 20180306
  3. BUDESONIDE. [Suspect]
     Active Substance: BUDESONIDE
     Indication: WHEEZING
     Dosage: (3)
     Route: 055
     Dates: start: 20180306

REACTIONS (4)
  - Pruritus [Not Recovered/Not Resolved]
  - Macule [Not Recovered/Not Resolved]
  - Aphthous ulcer [Not Recovered/Not Resolved]
  - Rash papular [Not Recovered/Not Resolved]

NARRATIVE: CASE EVENT DATE: 20180307
